FAERS Safety Report 23827296 (Version 1)
Quarter: 2024Q2

REPORT INFORMATION
  Report Type: Spontaneous
  Country: DE (occurrence: DE)
  Receive Date: 20240507
  Receipt Date: 20240507
  Transmission Date: 20240716
  Serious: Yes (Other)
  Sender: FDA-Public Use
  Company Number: DE-002147023-NVSC2024DE095314

PATIENT
  Sex: Female

DRUGS (1)
  1. KESIMPTA [Suspect]
     Active Substance: OFATUMUMAB
     Indication: Multiple sclerosis
     Dosage: UNK
     Route: 065
     Dates: start: 2023

REACTIONS (4)
  - Myelin oligodendrocyte glycoprotein antibody-associated disease [Unknown]
  - Muscular weakness [Unknown]
  - Paraesthesia [Unknown]
  - Infection [Unknown]
